FAERS Safety Report 5007251-6 (Version None)
Quarter: 2006Q2

REPORT INFORMATION
  Report Type: 
  Country: None (occurrence: None)
  Receive Date: 20060518
  Receipt Date: 20060518
  Transmission Date: 20061013
  Serious: Yes (Life-Threatening, Hospitalization)
  Sender: FDA-Public Use
  Company Number: None

PATIENT
  Sex: Female
  Weight: 68.0396 kg

DRUGS (1)
  1. ENBREL [Suspect]
     Indication: RHEUMATOID ARTHRITIS
     Dosage: TWO SHOTS PER WEEK
     Dates: start: 20000701, end: 20060101

REACTIONS (20)
  - ASTHMA [None]
  - CARDIAC DISORDER [None]
  - CHEST PAIN [None]
  - HYPERSENSITIVITY [None]
  - ILL-DEFINED DISORDER [None]
  - IMPAIRED WORK ABILITY [None]
  - INFECTION [None]
  - NASAL DISORDER [None]
  - NEUROPATHY [None]
  - OEDEMA MOUTH [None]
  - PAIN [None]
  - PAIN OF SKIN [None]
  - PHARYNGEAL OEDEMA [None]
  - PNEUMONIA STAPHYLOCOCCAL [None]
  - PRURITUS [None]
  - RASH [None]
  - SKIN SWELLING [None]
  - STOMATITIS [None]
  - THERAPY NON-RESPONDER [None]
  - VAGINAL OEDEMA [None]
